FAERS Safety Report 9038283 (Version 2)
Quarter: 2013Q1

REPORT INFORMATION
  Report Type: Spontaneous
  Country: US (occurrence: US)
  Receive Date: 20130129
  Receipt Date: 20130204
  Transmission Date: 20140127
  Serious: Yes (Other)
  Sender: FDA-Public Use
  Company Number: US-NAPPMUNDI-USA-2013-0097871

PATIENT
  Sex: 0

DRUGS (9)
  1. BUTRANS [Suspect]
     Indication: PRODUCT USED FOR UNKNOWN INDICATION
     Dosage: 10 MCG, DAILY
     Route: 062
     Dates: start: 20120811
  2. BUTRANS [Suspect]
     Dosage: 20 MCG, DAILY
     Route: 062
     Dates: start: 201211, end: 201212
  3. BUTRANS [Suspect]
     Dosage: 10 MCG, DAILY
     Route: 062
  4. LOVASTATIN [Concomitant]
     Indication: PRODUCT USED FOR UNKNOWN INDICATION
     Dosage: UNKNOWN
  5. PERCOCET                           /00446701/ [Concomitant]
     Indication: PRODUCT USED FOR UNKNOWN INDICATION
     Dosage: UNKNOWN
  6. XANAX [Concomitant]
     Indication: PRODUCT USED FOR UNKNOWN INDICATION
     Dosage: UNKNOWN
  7. BACLOFEN [Concomitant]
     Indication: PRODUCT USED FOR UNKNOWN INDICATION
     Dosage: UNKNOWN
  8. ZANAFLEX [Concomitant]
     Indication: PRODUCT USED FOR UNKNOWN INDICATION
     Dosage: UNKNOWN
  9. BACTRIM [Concomitant]
     Indication: PRODUCT USED FOR UNKNOWN INDICATION
     Dosage: UNKNOWN

REACTIONS (5)
  - Blood glucose decreased [Unknown]
  - Muscle disorder [Unknown]
  - Muscle spasms [Recovering/Resolving]
  - Influenza [Unknown]
  - Musculoskeletal discomfort [Unknown]
